FAERS Safety Report 22367419 (Version 1)
Quarter: 2023Q2

REPORT INFORMATION
  Report Type: Spontaneous
  Country: US (occurrence: US)
  Receive Date: 20230525
  Receipt Date: 20230525
  Transmission Date: 20230722
  Serious: Yes (Death)
  Sender: FDA-Public Use
  Company Number: US-CHIESI-2023CHF02682

PATIENT
  Age: 57 Year
  Sex: Female

DRUGS (2)
  1. KENGREAL [Suspect]
     Active Substance: CANGRELOR
     Indication: Acute myocardial infarction
     Dosage: UNK
     Route: 042
     Dates: start: 20230515, end: 202305
  2. KENGREAL [Suspect]
     Active Substance: CANGRELOR
     Indication: Off label use

REACTIONS (2)
  - Death [Fatal]
  - Off label use [Recovered/Resolved]

NARRATIVE: CASE EVENT DATE: 20230515
